FAERS Safety Report 20034902 (Version 1)
Quarter: 2021Q4

REPORT INFORMATION
  Report Type: Spontaneous
  Country: ES (occurrence: ES)
  Receive Date: 20211104
  Receipt Date: 20211104
  Transmission Date: 20220303
  Serious: Yes (Other)
  Sender: FDA-Public Use
  Company Number: ES-SAMSUNG BIOEPIS-SB-2021-24632

PATIENT
  Age: 53 Year
  Sex: Female

DRUGS (4)
  1. METHOTREXATE [Suspect]
     Active Substance: METHOTREXATE
     Indication: Rheumatoid arthritis
     Dosage: UNKNOWN, OVER 5 YEARS
     Route: 065
  2. ADALIMUMAB [Suspect]
     Active Substance: ADALIMUMAB
     Indication: Rheumatoid arthritis
     Dosage: UNKNOWN, OVER 5 YEARS
     Route: 065
  3. AMPHOTERICIN B [Suspect]
     Active Substance: AMPHOTERICIN B
     Indication: Mucocutaneous leishmaniasis
     Dosage: 3 MG/KG, 1X/DAY
     Route: 042
  4. METHYL AMINOLEVULINATE [Concomitant]
     Active Substance: METHYL AMINOLEVULINATE
     Indication: Mucocutaneous leishmaniasis
     Dosage: PHOTODYNAMIC THERAPY
     Route: 065

REACTIONS (7)
  - Mucocutaneous leishmaniasis [Recovered/Resolved]
  - Condition aggravated [Recovered/Resolved]
  - Acute kidney injury [Recovered/Resolved]
  - Inflammation [Unknown]
  - Immunosuppression [Unknown]
  - Rhinoplasty [Unknown]
  - Staphylococcal infection [Unknown]
